FAERS Safety Report 7415743-5 (Version None)
Quarter: 2011Q2

REPORT INFORMATION
  Report Type: 
  Country: None (occurrence: None)
  Receive Date: 20110406
  Receipt Date: 20110323
  Transmission Date: 20111010
  Serious: Yes (Life-Threatening, Hospitalization)
  Sender: FDA-Public Use
  Company Number: 029862

PATIENT
  Sex: Female

DRUGS (5)
  1. PREDNISOLONE [Concomitant]
  2. CIMZIA [Suspect]
     Indication: RHEUMATOID ARTHRITIS
     Dosage: (400 MG 1X/2 WEEKS SUBCUTANEOUS)
     Route: 058
     Dates: start: 20110101, end: 20110228
  3. SULFASALAZINE [Concomitant]
  4. METREXAN [Concomitant]
  5. OXIKLORIN [Concomitant]

REACTIONS (1)
  - DISSEMINATED TUBERCULOSIS [None]
